FAERS Safety Report 25153121 (Version 1)
Quarter: 2025Q2

REPORT INFORMATION
  Report Type: Spontaneous
  Country: US (occurrence: US)
  Receive Date: 20250403
  Receipt Date: 20250403
  Transmission Date: 20250716
  Serious: No
  Sender: ROCHE
  Company Number: US-ROCHE-10000242698

PATIENT
  Age: 28 Year
  Sex: Male

DRUGS (2)
  1. XOLAIR [Suspect]
     Active Substance: OMALIZUMAB
     Indication: Inflammatory bowel disease
     Route: 065
  2. XOLAIR [Suspect]
     Active Substance: OMALIZUMAB
     Indication: Eosinophilic oesophagitis

REACTIONS (5)
  - Flushing [Unknown]
  - Swelling [Unknown]
  - Arthralgia [Unknown]
  - Muscle spasms [Unknown]
  - Gastrointestinal pain [Unknown]
